FAERS Safety Report 9901079 (Version 1)
Quarter: 2014Q1

REPORT INFORMATION
  Report Type: Spontaneous
  Country: US (occurrence: US)
  Receive Date: 20140217
  Receipt Date: 20140217
  Transmission Date: 20141002
  Serious: No
  Sender: FDA-Public Use
  Company Number: US-PFIZER INC-2014043094

PATIENT
  Age: 55 Year
  Sex: Male
  Weight: 115.65 kg

DRUGS (1)
  1. LYRICA [Suspect]
     Indication: BACK PAIN
     Dosage: 75 MG, DAILY
     Dates: start: 201312, end: 201401

REACTIONS (4)
  - Local swelling [Recovered/Resolved]
  - Pain in extremity [Not Recovered/Not Resolved]
  - Gout [Unknown]
  - Skin discolouration [Unknown]
